FAERS Safety Report 9307434 (Version 1)
Quarter: 2013Q2

REPORT INFORMATION
  Report Type: Spontaneous
  Country: CN (occurrence: CN)
  Receive Date: 20130524
  Receipt Date: 20130524
  Transmission Date: 20140414
  Serious: Yes (Hospitalization)
  Sender: FDA-Public Use
  Company Number: CN-JNJFOC-20130510246

PATIENT
  Age: 80 Year
  Sex: Male

DRUGS (1)
  1. RISPERIDONE [Suspect]
     Indication: ADJUVANT THERAPY
     Route: 048
     Dates: start: 20120419, end: 20120420

REACTIONS (4)
  - Hypokinesia [Recovered/Resolved]
  - Aphasia [Recovered/Resolved]
  - Eating disorder [Recovered/Resolved]
  - Blunted affect [Recovered/Resolved]
